FAERS Safety Report 21301803 (Version 1)
Quarter: 2022Q3

REPORT INFORMATION
  Report Type: Spontaneous
  Country: US (occurrence: None)
  Receive Date: 20220906
  Receipt Date: 20220906
  Transmission Date: 20221026
  Serious: Yes (Hospitalization)
  Sender: FDA-Public Use
  Company Number: None

PATIENT
  Age: 55 Year
  Sex: Male

DRUGS (1)
  1. MAGNESIUM CITRATE [Suspect]
     Active Substance: MAGNESIUM CITRATE
     Indication: Colonoscopy
     Dosage: OTHER QUANTITY : 1 10 FL OZ;?OTHER FREQUENCY : ONCE;?
     Route: 048
     Dates: start: 20220615, end: 20220615

REACTIONS (3)
  - Abdominal discomfort [None]
  - Abdominal pain upper [None]
  - Diverticulitis intestinal perforated [None]

NARRATIVE: CASE EVENT DATE: 20220623
